FAERS Safety Report 6189421-7 (Version None)
Quarter: 2009Q2

REPORT INFORMATION
  Report Type: 
  Country: None (occurrence: None)
  Receive Date: 20090512
  Receipt Date: 20090512
  Transmission Date: 20091009
  Serious: No
  Sender: FDA-Public Use
  Company Number: None

PATIENT

DRUGS (1)
  1. SEPTOCAINE [Suspect]

REACTIONS (11)
  - BURNING SENSATION [None]
  - DYSAESTHESIA [None]
  - GLOSSODYNIA [None]
  - HYPOAESTHESIA [None]
  - HYPOGEUSIA [None]
  - IATROGENIC INJURY [None]
  - INCORRECT ROUTE OF DRUG ADMINISTRATION [None]
  - INJECTION SITE PAIN [None]
  - ORAL DISCOMFORT [None]
  - PARAESTHESIA [None]
  - SKIN BURNING SENSATION [None]
